FAERS Safety Report 23109765 (Version 2)
Quarter: 2023Q4

REPORT INFORMATION
  Report Type: Report from Study
  Country: CN (occurrence: CN)
  Receive Date: 20231026
  Receipt Date: 20231030
  Transmission Date: 20240110
  Serious: Yes (Hospitalization)
  Sender: FDA-Public Use
  Company Number: CN-PFIZER INC-PV202300157194

PATIENT
  Age: 10 Year
  Sex: Female
  Weight: 58.5 kg

DRUGS (8)
  1. TOFACITINIB CITRATE [Suspect]
     Active Substance: TOFACITINIB CITRATE
     Indication: Still^s disease
     Dosage: 5 MG, 2X/DAY
     Route: 048
     Dates: start: 20230823, end: 20230920
  2. METHOTREXATE [Concomitant]
     Active Substance: METHOTREXATE
     Indication: Still^s disease
     Dosage: 12.5 MG, WEEKLY (QW)
     Route: 048
     Dates: start: 20220615
  3. FOLATE SODIUM [Concomitant]
     Active Substance: FOLATE SODIUM
     Indication: Still^s disease
     Dosage: 4 MG, WEEKLY(QW)
     Route: 048
     Dates: start: 20220615
  4. PREDNISONE [Concomitant]
     Active Substance: PREDNISONE
     Indication: Still^s disease
     Dosage: 20 MG, 1X/DAY (QD)
     Route: 048
     Dates: start: 20230902, end: 20230920
  5. SERTRALINE [Concomitant]
     Active Substance: SERTRALINE HYDROCHLORIDE
     Indication: Anxiety
     Dosage: 50 MG, 1X/DAY (QD)
     Route: 048
     Dates: start: 20230830, end: 20230903
  6. SERTRALINE [Concomitant]
     Active Substance: SERTRALINE HYDROCHLORIDE
     Indication: Depression
     Dosage: 75 MG, 1X/DAY (QD)
     Route: 048
     Dates: start: 20230904, end: 20230913
  7. ALPRAZOLAM [Concomitant]
     Active Substance: ALPRAZOLAM
     Indication: Anxiety
     Dosage: 0.4 MG, 1X/DAY EVERY NIGHT (QN)
     Route: 048
     Dates: start: 20230830
  8. ALPRAZOLAM [Concomitant]
     Active Substance: ALPRAZOLAM
     Indication: Depression

REACTIONS (1)
  - Depression [Recovering/Resolving]

NARRATIVE: CASE EVENT DATE: 20230914
